FAERS Safety Report 8848732 (Version 1)
Quarter: 2012Q4

REPORT INFORMATION
  Report Type: 
  Country: US (occurrence: US)
  Receive Date: 20121018
  Receipt Date: 20121018
  Transmission Date: 20130627
  Serious: No
  Sender: FDA-Public Use
  Company Number: US-PFIZER INC-2012257930

PATIENT
  Age: 84 Year
  Sex: Female

DRUGS (3)
  1. LIPITOR [Suspect]
     Dosage: UNK
  2. ACCUPRIL [Suspect]
     Dosage: UNK
  3. DETROL LA [Suspect]
     Dosage: UNK

REACTIONS (2)
  - Rhinitis allergic [Unknown]
  - Drug ineffective [Unknown]
